FAERS Safety Report 9734897 (Version 1)
Quarter: 2013Q4

REPORT INFORMATION
  Report Type: Spontaneous
  Country: US (occurrence: US)
  Receive Date: 20131206
  Receipt Date: 20131206
  Transmission Date: 20140711
  Serious: No
  Sender: FDA-Public Use
  Company Number: US-ENDO PHARMACEUTICALS INC.-BENZ20120002

PATIENT
  Age: 58 Year
  Sex: Female
  Weight: 99.88 kg

DRUGS (6)
  1. BENZTROPINE MESYLATE [Suspect]
     Indication: PARKINSONISM
     Route: 048
     Dates: start: 201203
  2. AVAPRO [Concomitant]
     Indication: BLOOD PRESSURE INCREASED
  3. HYDROCHLOROTHIAZIDE [Concomitant]
     Indication: BLOOD PRESSURE INCREASED
  4. CARDIZEM [Concomitant]
     Indication: PRODUCT USED FOR UNKNOWN INDICATION
  5. LOXAPINE [Concomitant]
     Indication: PRODUCT USED FOR UNKNOWN INDICATION
  6. LITHIUM [Concomitant]
     Indication: PRODUCT USED FOR UNKNOWN INDICATION

REACTIONS (4)
  - Terminal insomnia [Not Recovered/Not Resolved]
  - Blood pressure increased [Not Recovered/Not Resolved]
  - Erythema [Not Recovered/Not Resolved]
  - Drug ineffective [Not Recovered/Not Resolved]
